FAERS Safety Report 10429949 (Version 1)
Quarter: 2014Q3

REPORT INFORMATION
  Report Type: Spontaneous
  Country: US (occurrence: US)
  Receive Date: 20140904
  Receipt Date: 20140904
  Transmission Date: 20150326
  Serious: Yes (Hospitalization, Other)
  Sender: FDA-Public Use
  Company Number: US-GILEAD-2014-0114060

PATIENT
  Age: 89 Year
  Sex: Female

DRUGS (10)
  1. GLIPIZIDE. [Concomitant]
     Active Substance: GLIPIZIDE
  2. LORAZEPAM. [Concomitant]
     Active Substance: LORAZEPAM
  3. NITROSTAT [Concomitant]
     Active Substance: NITROGLYCERIN
  4. PANTOPRAZOLE [Concomitant]
     Active Substance: PANTOPRAZOLE SODIUM
  5. LASIX [Concomitant]
     Active Substance: FUROSEMIDE
  6. WARFARIN [Concomitant]
     Active Substance: WARFARIN
  7. METOPROLOL [Concomitant]
     Active Substance: METOPROLOL
  8. LETAIRIS [Suspect]
     Active Substance: AMBRISENTAN
     Indication: COR PULMONALE CHRONIC
     Dosage: 5 MG, QD
     Route: 065
     Dates: start: 20131024
  9. PAROXETINE [Concomitant]
     Active Substance: PAROXETINE\PAROXETINE HYDROCHLORIDE
  10. ISOSORBIDE [Concomitant]
     Active Substance: ISOSORBIDE

REACTIONS (2)
  - Pulmonary hypertension [Recovered/Resolved]
  - Dyspnoea [Recovered/Resolved]

NARRATIVE: CASE EVENT DATE: 20140826
